FAERS Safety Report 17670813 (Version 1)
Quarter: 2020Q2

REPORT INFORMATION
  Report Type: Spontaneous
  Country: FR (occurrence: FR)
  Receive Date: 20200415
  Receipt Date: 20200415
  Transmission Date: 20200713
  Serious: Yes (Hospitalization)
  Sender: FDA-Public Use
  Company Number: FR-MYLANLABS-2020M1037409

PATIENT
  Age: 14 Year
  Sex: Male
  Weight: 46 kg

DRUGS (3)
  1. AMIKACINE MYLAN 500 MG, POUDRE POUR SOLUTION INJECTABLE [Suspect]
     Active Substance: AMIKACIN
     Indication: APLASIA
     Dosage: 870 MILLIGRAM
     Route: 042
     Dates: start: 20200210, end: 20200211
  2. VANCOMYCINE MYLAN 500 MG POUDRE POUR SOLUTION POUR PERFUSION [Suspect]
     Active Substance: VANCOMYCIN
     Indication: APLASIA
     Dosage: 1950 MILLIGRAM
     Route: 042
     Dates: start: 20200211, end: 20200212
  3. AMBISOME [Suspect]
     Active Substance: AMPHOTERICIN B
     Indication: APLASIA
     Dosage: 130 MILLIGRAM
     Route: 042
     Dates: start: 20200125, end: 20200212

REACTIONS (1)
  - Acute kidney injury [Recovered/Resolved]

NARRATIVE: CASE EVENT DATE: 20200212
